FAERS Safety Report 9338667 (Version 1)
Quarter: 2013Q2

REPORT INFORMATION
  Report Type: Spontaneous
  Country: US (occurrence: US)
  Receive Date: 20130610
  Receipt Date: 20130610
  Transmission Date: 20140414
  Serious: Yes (Other)
  Sender: FDA-Public Use
  Company Number: US-BRISTOL-MYERS SQUIBB COMPANY-18703637

PATIENT
  Sex: 0

DRUGS (2)
  1. SUSTIVA [Suspect]
  2. EPZICOM [Suspect]

REACTIONS (1)
  - Viral mutation identified [Unknown]
